FAERS Safety Report 20598906 (Version 1)
Quarter: 2022Q1

REPORT INFORMATION
  Report Type: Other
  Country: US (occurrence: None)
  Receive Date: 20220315
  Receipt Date: 20220315
  Transmission Date: 20220423
  Serious: No
  Sender: FDA-Public Use
  Company Number: US-ROCHE-3047490

PATIENT
  Sex: Female

DRUGS (1)
  1. OCREVUS [Suspect]
     Active Substance: OCRELIZUMAB
     Indication: Relapsing-remitting multiple sclerosis
     Dosage: 300MG ON DAY 1 AND DAY 15 LATER 600MG EVERY 6 MONTHS, 1ST HALF INFUSION: 20/OCT/2021, 2ND HALF INFUS
     Route: 042
     Dates: start: 20211020

REACTIONS (4)
  - Headache [Not Recovered/Not Resolved]
  - Migraine [Not Recovered/Not Resolved]
  - Candida infection [Not Recovered/Not Resolved]
  - Rash [Not Recovered/Not Resolved]
